FAERS Safety Report 15391507 (Version 1)
Quarter: 2018Q3

REPORT INFORMATION
  Report Type: Spontaneous
  Country: IT (occurrence: IT)
  Receive Date: 20180917
  Receipt Date: 20180917
  Transmission Date: 20181010
  Serious: Yes (Other)
  Sender: FDA-Public Use
  Company Number: PHHY2018IT099283

PATIENT
  Age: 32 Year
  Sex: Female

DRUGS (2)
  1. CLARITROMICINA SANDOZ [Suspect]
     Active Substance: CLARITHROMYCIN
     Indication: PERTUSSIS
     Dosage: 1000 MG, QD
     Route: 048
     Dates: start: 20180821, end: 20180828
  2. CLARITROMICINA SANDOZ [Suspect]
     Active Substance: CLARITHROMYCIN
     Dosage: 1000 MG, QD
     Route: 048
     Dates: start: 20180829, end: 20180904

REACTIONS (2)
  - Rectal haemorrhage [Recovering/Resolving]
  - Abdominal pain [Recovering/Resolving]

NARRATIVE: CASE EVENT DATE: 20180904
